FAERS Safety Report 21734871 (Version 1)
Quarter: 2022Q4

REPORT INFORMATION
  Report Type: Report from Study
  Country: US (occurrence: US)
  Receive Date: 20221215
  Receipt Date: 20221215
  Transmission Date: 20230112
  Serious: No
  Sender: FDA-Public Use
  Company Number: US-ABBVIE-4237877

PATIENT
  Sex: Female

DRUGS (1)
  1. IMBRUVICA [Suspect]
     Active Substance: IBRUTINIB
     Indication: Chronic lymphocytic leukaemia
     Dosage: DUE TO PARTIAL DATE OF 2022 EVENT ONSET DATE OF  WAS GETTING CRAMPS IN LEGS AND FEET COULD NOT BE...
     Route: 048
     Dates: start: 20220909

REACTIONS (1)
  - Muscle spasms [Unknown]
